FAERS Safety Report 7199234-5 (Version None)
Quarter: 2010Q4

REPORT INFORMATION
  Report Type: 
  Country: None (occurrence: None)
  Receive Date: 20101215
  Receipt Date: 20080612
  Transmission Date: 20110411
  Serious: Yes (Death, Other)
  Sender: FDA-Public Use
  Company Number: UTC-002900

PATIENT
  Sex: Male

DRUGS (1)
  1. REMODULIN [Suspect]
     Dosage: SUBCUTANEOUS
     Route: 058

REACTIONS (2)
  - PULMONARY FIBROSIS [None]
  - SEPSIS [None]
